FAERS Safety Report 11864960 (Version 4)
Quarter: 2016Q1

REPORT INFORMATION
  Report Type: Spontaneous
  Country: US (occurrence: US)
  Receive Date: 20151223
  Receipt Date: 20160325
  Transmission Date: 20160526
  Serious: No
  Sender: FDA-Public Use
  Company Number: US-PFIZER INC-2015440413

PATIENT
  Age: 52 Year
  Sex: Male
  Weight: 90.7 kg

DRUGS (6)
  1. HYDROMORPHONE [Suspect]
     Active Substance: HYDROMORPHONE
     Indication: PAIN
     Dosage: 4 MG, 2X/DAY
  2. OXYCODONE [Suspect]
     Active Substance: OXYCODONE
     Dosage: 15 UNK, UNK
     Dates: start: 2015
  3. OXYCODONE [Suspect]
     Active Substance: OXYCODONE
     Dosage: 5 MG, UNK
     Dates: start: 2011
  4. CELEBREX [Suspect]
     Active Substance: CELECOXIB
     Indication: MUSCLE DISORDER
     Dosage: UNK
     Dates: start: 2008, end: 2008
  5. OXYCODONE [Suspect]
     Active Substance: OXYCODONE
     Indication: PAIN
     Dosage: 15 MG, UNK (TWO-THREE TIMES A DAY)
     Dates: start: 2015
  6. CELEBREX [Suspect]
     Active Substance: CELECOXIB
     Indication: BRAIN INJURY

REACTIONS (2)
  - Drug ineffective [Not Recovered/Not Resolved]
  - Skin disorder [Unknown]
